FAERS Safety Report 6925595-5 (Version None)
Quarter: 2010Q3

REPORT INFORMATION
  Report Type: 
  Country: None (occurrence: None)
  Receive Date: 20100813
  Receipt Date: 20100813
  Transmission Date: 20110219
  Serious: Yes (Hospitalization)
  Sender: FDA-Public Use
  Company Number: None

PATIENT
  Sex: Female
  Weight: 48 kg

DRUGS (2)
  1. CYTARABINE [Suspect]
     Dosage: 2030 MG
     Dates: end: 20100713
  2. DAUNORUBICIN HCL [Suspect]
     Dosage: 261 MG
     Dates: end: 20100709

REACTIONS (6)
  - ASPERGILLUS TEST POSITIVE [None]
  - HYPOXIA [None]
  - LUNG DISORDER [None]
  - LUNG INFILTRATION [None]
  - PLEURAL EFFUSION [None]
  - PULMONARY HAEMORRHAGE [None]
